FAERS Safety Report 23910860 (Version 1)
Quarter: 2024Q2

REPORT INFORMATION
  Report Type: Spontaneous
  Country: US (occurrence: US)
  Receive Date: 20240528
  Receipt Date: 20240528
  Transmission Date: 20240716
  Serious: No
  Sender: FDA-Public Use
  Company Number: US-AVADEL CNS PHARMACEUTICALS, LLC-2024AVA00473

PATIENT
  Sex: Female

DRUGS (3)
  1. LUMRYZ [Suspect]
     Active Substance: SODIUM OXYBATE
     Indication: Narcolepsy
     Dosage: 6 G, ONCE NIGHTLY
     Dates: start: 20240320, end: 20240321
  2. LUMRYZ [Suspect]
     Active Substance: SODIUM OXYBATE
     Indication: Cataplexy
     Dosage: 6 G, ONCE NIGHTLY
     Dates: start: 20240324
  3. LUNESTA [Concomitant]
     Active Substance: ESZOPICLONE
     Dosage: UNK
     Dates: start: 20240322, end: 20240323

REACTIONS (5)
  - Insomnia [Recovering/Resolving]
  - Middle insomnia [Not Recovered/Not Resolved]
  - Initial insomnia [Not Recovered/Not Resolved]
  - Intentional dose omission [Recovered/Resolved]
  - Nocturia [Not Recovered/Not Resolved]

NARRATIVE: CASE EVENT DATE: 20240101
